FAERS Safety Report 9888260 (Version 3)
Quarter: 2014Q1

REPORT INFORMATION
  Report Type: Spontaneous
  Country: JP (occurrence: None)
  Receive Date: 20140207
  Receipt Date: 20140314
  Transmission Date: 20141002
  Serious: Yes (Death, Hospitalization)
  Sender: FDA-Public Use
  Company Number: SYM-2014-16917

PATIENT
  Age: 47 Year
  Sex: Male
  Weight: 57 kg

DRUGS (9)
  1. CHOREAZINE [Suspect]
     Indication: HUNTINGTON^S DISEASE
     Route: 048
     Dates: start: 20130801, end: 20131127
  2. SERENACE(HALOPERIDOL)(HALOPERIDOL) [Concomitant]
  3. YOKUKANSAN(YOKUKANSAN) (ANGELICA ACUTILOBA ROOT, PORIA COCOS SCLEROTIUM, ATRACTYLODES LANCEA RHIZOME, BUPLEURUM FALCATUM ROOT, CNIDIUM OFFICINALE RHIZOME, [Concomitant]
  4. RIVOTRIL(CLONAZEPAM)(CLONAZEPAM) [Concomitant]
  5. DEPAKENE-R(VALPROATE SODIUM)(VALPROATE SODIUM) [Concomitant]
  6. MYSLEE(ZOLPIDEM TARTRATE) (ZOLPIDEM TARTRATE) [Concomitant]
  7. DEZOLAM(ETIZOLAM)(ETIZOLAM) [Concomitant]
  8. ABILIFY (ARIPIPRAZOLE) [Concomitant]
  9. GRAMALIL (TIAPRIDE HYDROCHLORIDE) [Concomitant]

REACTIONS (2)
  - Pneumonia [None]
  - Pneumonia aspiration [None]
